FAERS Safety Report 7406484-9 (Version None)
Quarter: 2011Q2

REPORT INFORMATION
  Report Type: 
  Country: None (occurrence: None)
  Receive Date: 20110411
  Receipt Date: 20110407
  Transmission Date: 20111010
  Serious: Yes (Life-Threatening, Hospitalization)
  Sender: FDA-Public Use
  Company Number: NL-SANOFI-AVENTIS-2011SA021136

PATIENT
  Age: 66 Year
  Sex: Female
  Weight: 79.1 kg

DRUGS (7)
  1. CAPECITABINE [Suspect]
     Route: 048
     Dates: start: 20110302, end: 20110307
  2. OMEPRAZOLE [Concomitant]
     Route: 048
     Dates: start: 20110218, end: 20110308
  3. FRAXIPARINE /FRA/ [Concomitant]
     Indication: PULMONARY EMBOLISM
     Route: 058
     Dates: start: 20110307, end: 20110308
  4. DOCETAXEL [Suspect]
     Indication: BREAST CANCER
     Route: 042
     Dates: start: 20110209, end: 20110209
  5. DOCETAXEL [Suspect]
     Route: 042
     Dates: start: 20110302, end: 20110302
  6. CAPECITABINE [Suspect]
     Indication: BREAST CANCER
     Route: 048
     Dates: start: 20110209
  7. MORFINE [Concomitant]
     Route: 065
     Dates: start: 20110307, end: 20110307

REACTIONS (1)
  - CARDIO-RESPIRATORY ARREST [None]
